FAERS Safety Report 9715017 (Version 1)
Quarter: 2013Q4

REPORT INFORMATION
  Report Type: Spontaneous
  Country: US (occurrence: US)
  Receive Date: 20131126
  Receipt Date: 20131126
  Transmission Date: 20140711
  Serious: No
  Sender: FDA-Public Use
  Company Number: US-NOVEN-13US007765

PATIENT
  Age: 58 Year
  Sex: Female

DRUGS (15)
  1. MINIVELLE [Suspect]
     Indication: MENOPAUSE
     Dosage: 0.075 MG/DAILY, UNK
     Route: 062
     Dates: start: 201309
  2. MINIVELLE [Suspect]
     Dosage: 0.05 MG/DAY, UNK
     Route: 062
     Dates: start: 201309, end: 201309
  3. PRISTIQ [Concomitant]
     Indication: DEPRESSION
  4. ALDACTAZIDE [Concomitant]
     Indication: FLUID RETENTION
  5. TOPAMAX [Concomitant]
     Indication: APPETITE DISORDER
  6. TOPAMAX [Concomitant]
     Indication: AFFECTIVE DISORDER
  7. TOPAMAX [Concomitant]
     Indication: ALCOHOLISM
  8. TRAZODONE [Concomitant]
     Indication: SLEEP DISORDER
  9. PROPRANOLOL [Concomitant]
     Indication: PRODUCT USED FOR UNKNOWN INDICATION
  10. FISH OIL [Concomitant]
     Indication: PRODUCT USED FOR UNKNOWN INDICATION
  11. CO Q-10 [Concomitant]
     Indication: PRODUCT USED FOR UNKNOWN INDICATION
  12. VITAMIN B3 [Concomitant]
     Indication: PRODUCT USED FOR UNKNOWN INDICATION
  13. VITAMIN B12                        /00056201/ [Concomitant]
     Indication: PRODUCT USED FOR UNKNOWN INDICATION
  14. VITAMIN C                          /00008001/ [Concomitant]
     Indication: PRODUCT USED FOR UNKNOWN INDICATION
  15. FOLIC ACID [Concomitant]
     Indication: PRODUCT USED FOR UNKNOWN INDICATION

REACTIONS (6)
  - Energy increased [Unknown]
  - Stress [Unknown]
  - Nervousness [Unknown]
  - Irritability [Not Recovered/Not Resolved]
  - Weight increased [Unknown]
  - Off label use [Not Recovered/Not Resolved]
